FAERS Safety Report 21699306 (Version 1)
Quarter: 2022Q4

REPORT INFORMATION
  Report Type: Spontaneous
  Country: US (occurrence: None)
  Receive Date: 20221207
  Receipt Date: 20221207
  Transmission Date: 20230112
  Serious: Yes (Other)
  Sender: FDA-Public Use
  Company Number: None

PATIENT
  Age: 89 Year
  Sex: Male
  Weight: 68.5 kg

DRUGS (8)
  1. PAXLOVID [Suspect]
     Active Substance: NIRMATRELVIR\RITONAVIR
     Indication: COVID-19
     Dates: start: 20221203, end: 20221206
  2. calcium carbonate 200mg [Concomitant]
     Dates: start: 20150615
  3. cholecalciferol 400uints [Concomitant]
     Dates: start: 20150615
  4. FAMOTIDINE [Concomitant]
     Active Substance: FAMOTIDINE
     Dates: start: 20220719
  5. furosemide 40mg 1tab qD [Concomitant]
     Dates: start: 20210521
  6. isosorbide mononitrate 30mg SR [Concomitant]
     Dates: start: 20210611
  7. metoprolol succinate 25mg SR 1tab qD [Concomitant]
     Dates: start: 20210521
  8. PANTOPRAZOLE SODIUM [Concomitant]
     Active Substance: PANTOPRAZOLE SODIUM
     Dates: start: 20210109

REACTIONS (1)
  - Tinnitus [None]

NARRATIVE: CASE EVENT DATE: 20221205
